FAERS Safety Report 11881233 (Version 2)
Quarter: 2016Q1

REPORT INFORMATION
  Report Type: Spontaneous
  Country: JP (occurrence: JP)
  Receive Date: 20151231
  Receipt Date: 20160106
  Transmission Date: 20160526
  Serious: Yes (Other)
  Sender: FDA-Public Use
  Company Number: JP-009507513-1511JPN005556

PATIENT
  Age: 54 Year
  Sex: Male
  Weight: 39 kg

DRUGS (10)
  1. EFFORTIL [Concomitant]
     Active Substance: ETILEFRINE HYDROCHLORIDE
     Indication: BLOOD PRESSURE MANAGEMENT
     Dosage: 8 MG, QD (DIVIDED DOSE FREQUENCY UNKNOWN)
     Route: 042
     Dates: start: 20151015, end: 20151015
  2. BRIDION [Suspect]
     Active Substance: SUGAMMADEX
     Indication: NEUROMUSCULAR BLOCKADE REVERSAL
     Dosage: 200 MG, QD (4.0 MG/KG)
     Route: 042
     Dates: start: 20151015, end: 20151015
  3. DIPRIVAN [Concomitant]
     Active Substance: PROPOFOL
     Indication: SEDATION
     Dosage: 60 MG, QD (DIVIDED DOSE FREQUENCY UNKNOWN)
     Route: 042
     Dates: start: 20151015, end: 20151015
  4. PROPOFOL. [Concomitant]
     Active Substance: PROPOFOL
     Dosage: DAILY DOSAGE UNKNOWN
     Dates: start: 20151015, end: 20151015
  5. FENTANYL. [Concomitant]
     Active Substance: FENTANYL
     Indication: ANALGESIC THERAPY
     Dosage: 60 MICROGRAM, QD (DIVIDED DOSE UNKNOWN)
     Route: 042
     Dates: start: 20151015, end: 20151015
  6. ACELIO [Concomitant]
     Active Substance: ACETAMINOPHEN
     Indication: ANALGESIC THERAPY
     Dosage: 1000 MG QD
     Route: 042
     Dates: start: 20151015, end: 20151015
  7. TRANSAMIN [Concomitant]
     Active Substance: TRANEXAMIC ACID
     Indication: HAEMOSTASIS
     Dosage: DAILY DOSAGE UNKNOWN
     Route: 042
     Dates: start: 20151015, end: 20151015
  8. EPHEDRINE. [Concomitant]
     Active Substance: EPHEDRINE
     Indication: BLOOD PRESSURE MANAGEMENT
     Dosage: 12 MG, QD (DIVIDED DOSE FREQUENCY UNKNOWN)
     Route: 042
     Dates: start: 20151015, end: 20151015
  9. ESLAX INTRAVENOUS 25MG/2.5ML [Concomitant]
     Active Substance: ROCURONIUM BROMIDE
     Indication: NEUROMUSCULAR BLOCKING THERAPY
     Dosage: DAILY DOSE UNKNOWN
     Route: 042
     Dates: start: 20151015, end: 20151015
  10. SEVOFLURANE. [Concomitant]
     Active Substance: SEVOFLURANE
     Indication: SEDATION
     Dosage: UNK
     Dates: start: 20151015, end: 20151015

REACTIONS (1)
  - Generalised erythema [Recovered/Resolved]

NARRATIVE: CASE EVENT DATE: 20151015
